FAERS Safety Report 8516425-9 (Version None)
Quarter: 2012Q3

REPORT INFORMATION
  Report Type: 
  Country: None (occurrence: None)
  Receive Date: 20120718
  Receipt Date: 20120709
  Transmission Date: 20120928
  Serious: No
  Sender: FDA-Public Use
  Company Number: US-009507513-1207USA002264

PATIENT

DRUGS (1)
  1. NASONEX [Suspect]
     Dosage: 1 DF, QD
     Route: 045

REACTIONS (3)
  - PRODUCT QUALITY ISSUE [None]
  - DRUG DOSE OMISSION [None]
  - NO ADVERSE EVENT [None]
